FAERS Safety Report 8086729-5 (Version None)
Quarter: 2012Q1

REPORT INFORMATION
  Report Type: 
  Country: None (occurrence: None)
  Receive Date: 20120128
  Receipt Date: 20110614
  Transmission Date: 20120608
  Serious: No
  Sender: FDA-Public Use
  Company Number: US-ABBOTT-11P-163-0731949-00

PATIENT
  Sex: Female
  Weight: 115.77 kg

DRUGS (2)
  1. HUMIRA [Suspect]
     Indication: PSORIASIS
     Dates: start: 20040101, end: 20110201
  2. XANAX [Concomitant]
     Indication: ANXIETY

REACTIONS (1)
  - PSORIASIS [None]
